FAERS Safety Report 6122222-4 (Version None)
Quarter: 2009Q1

REPORT INFORMATION
  Report Type: 
  Country: None (occurrence: None)
  Receive Date: 20090316
  Receipt Date: 20090316
  Transmission Date: 20090719
  Serious: Yes (Disabling)
  Sender: FDA-Public Use
  Company Number: None

PATIENT
  Age: 52 Year
  Sex: Male
  Weight: 85.2762 kg

DRUGS (1)
  1. CELEBREX [Suspect]
     Indication: RHEUMATOID ARTHRITIS
     Dosage: ONE CAPSULE DAILY PO
     Route: 048
     Dates: start: 20040515, end: 20090203

REACTIONS (8)
  - ABDOMINAL PAIN UPPER [None]
  - ERECTILE DYSFUNCTION [None]
  - GASTRIC DISORDER [None]
  - GASTRIC ULCER HAEMORRHAGE [None]
  - GASTROOESOPHAGEAL REFLUX DISEASE [None]
  - HEADACHE [None]
  - HYPERTENSION [None]
  - JOINT STIFFNESS [None]
